FAERS Safety Report 26144786 (Version 1)
Quarter: 2025Q4

REPORT INFORMATION
  Report Type: Spontaneous
  Country: US (occurrence: None)
  Receive Date: 20251210
  Receipt Date: 20251210
  Transmission Date: 20260118
  Serious: Yes (Other)
  Sender: FDA-CTU
  Company Number: None

PATIENT
  Age: 53 Year
  Sex: Female

DRUGS (1)
  1. XOLAIR PFS [Suspect]
     Active Substance: OMALIZUMAB
     Indication: Urticaria
     Dosage: 300MG EVERY 4 WEEKS

REACTIONS (6)
  - Urticaria [None]
  - Therapy change [None]
  - Drug ineffective [None]
  - Rash pruritic [None]
  - Lymphoedema [None]
  - Rash [None]
